FAERS Safety Report 12803567 (Version 1)
Quarter: 2016Q4

REPORT INFORMATION
  Report Type: Spontaneous
  Country: US (occurrence: US)
  Receive Date: 20161003
  Receipt Date: 20161003
  Transmission Date: 20170207
  Serious: Yes (Other)
  Sender: FDA-Public Use
  Company Number: US-TEVA-697903USA

PATIENT
  Age: 34 Year
  Sex: Female

DRUGS (1)
  1. COPAXONE [Suspect]
     Active Substance: GLATIRAMER ACETATE
     Indication: MULTIPLE SCLEROSIS
     Route: 058
     Dates: start: 201608

REACTIONS (6)
  - Back pain [Unknown]
  - Depression [Unknown]
  - Chest pain [Unknown]
  - Dyspnoea [Unknown]
  - Immediate post-injection reaction [Unknown]
  - Anxiety [Unknown]

NARRATIVE: CASE EVENT DATE: 201609
